FAERS Safety Report 23275993 (Version 1)
Quarter: 2023Q4

REPORT INFORMATION
  Report Type: Spontaneous
  Country: US (occurrence: US)
  Receive Date: 20231208
  Receipt Date: 20231208
  Transmission Date: 20240110
  Serious: No
  Sender: FDA-Public Use
  Company Number: US-TAKEDA-2023TUS118014

PATIENT
  Age: 70 Year
  Sex: Female

DRUGS (1)
  1. TAKHZYRO [Suspect]
     Active Substance: LANADELUMAB-FLYO
     Indication: Angioedema
     Dosage: 300 MILLIGRAM, Q4WEEKS
     Route: 065
     Dates: start: 202301

REACTIONS (1)
  - Injection site pain [Unknown]
